FAERS Safety Report 15905269 (Version 1)
Quarter: 2019Q1

REPORT INFORMATION
  Report Type: Spontaneous
  Country: US (occurrence: US)
  Receive Date: 20190110
  Receipt Date: 20190110
  Transmission Date: 20190417
  Serious: No
  Sender: FDA-Public Use
  Company Number: None

PATIENT
  Age: 47 Year
  Sex: Male

DRUGS (1)
  1. ENBREL [Suspect]
     Active Substance: ETANERCEPT
     Indication: RHEUMATOID ARTHRITIS
     Dates: start: 201607

REACTIONS (4)
  - Insurance issue [None]
  - Joint stiffness [None]
  - Product dose omission [None]
  - Pain [None]

NARRATIVE: CASE EVENT DATE: 20181212
